FAERS Safety Report 6544496-8 (Version None)
Quarter: 2010Q1

REPORT INFORMATION
  Report Type: 
  Country: None (occurrence: None)
  Receive Date: 20100120
  Receipt Date: 20100120
  Transmission Date: 20100710
  Serious: No
  Sender: FDA-Public Use
  Company Number: None

PATIENT
  Age: 81 Year
  Sex: Male
  Weight: 66.6788 kg

DRUGS (1)
  1. FEXOFENADINE [Suspect]
     Dosage: 2 PER TWICE DAILY
     Dates: start: 20100109, end: 20100111

REACTIONS (2)
  - DYSURIA [None]
  - URINARY TRACT DISORDER [None]
